FAERS Safety Report 7746050-9 (Version None)
Quarter: 2011Q3

REPORT INFORMATION
  Report Type: 
  Country: None (occurrence: None)
  Receive Date: 20110913
  Receipt Date: 20110908
  Transmission Date: 20111222
  Serious: Yes (Hospitalization, Other)
  Sender: FDA-Public Use
  Company Number: JP-SANOFI-AVENTIS-2010SA069175

PATIENT
  Age: 75 Year
  Sex: Female
  Weight: 45 kg

DRUGS (8)
  1. BEVACIZUMAB [Suspect]
     Indication: COLON CANCER
     Route: 041
  2. OXALIPLATIN [Suspect]
     Indication: COLON CANCER
     Route: 041
     Dates: start: 20100730, end: 20100909
  3. OXALIPLATIN [Suspect]
     Route: 041
     Dates: start: 20101008, end: 20101216
  4. CANDESARTAN CILEXETIL [Concomitant]
     Indication: HYPERTENSION
     Route: 048
     Dates: start: 20100730
  5. CAPECITABINE [Suspect]
     Indication: COLON CANCER
     Route: 048
     Dates: start: 20101008, end: 20110310
  6. CAPECITABINE [Suspect]
     Route: 048
     Dates: start: 20110407
  7. OXALIPLATIN [Suspect]
     Route: 041
     Dates: start: 20110106, end: 20110224
  8. CAPECITABINE [Suspect]
     Route: 048
     Dates: start: 20100730, end: 20100923

REACTIONS (3)
  - LUNG INFECTION [None]
  - PLATELET COUNT DECREASED [None]
  - DISSEMINATED INTRAVASCULAR COAGULATION [None]
